FAERS Safety Report 13083303 (Version 1)
Quarter: 2017Q1

REPORT INFORMATION
  Report Type: Report from Study
  Country: None (occurrence: CZ)
  Receive Date: 20170104
  Receipt Date: 20170104
  Transmission Date: 20170428
  Serious: Yes (Death)
  Sender: FDA-Public Use
  Company Number: CZ-ABBVIE-17K-217-1827450-00

PATIENT
  Age: 54 Year
  Sex: Male

DRUGS (1)
  1. HUMIRA [Suspect]
     Active Substance: ADALIMUMAB
     Indication: ANKYLOSING SPONDYLITIS
     Route: 058
     Dates: start: 20130327

REACTIONS (5)
  - Hepato-lenticular degeneration [Fatal]
  - Sepsis [Fatal]
  - Headache [Fatal]
  - Liver disorder [Fatal]
  - Toxicologic test abnormal [Fatal]

NARRATIVE: CASE EVENT DATE: 20150901
